FAERS Safety Report 6331275-X (Version None)
Quarter: 2009Q3

REPORT INFORMATION
  Report Type: 
  Country: None (occurrence: None)
  Receive Date: 20090827
  Receipt Date: 20090821
  Transmission Date: 20100115
  Serious: Yes (Death, Life-Threatening, Hospitalization)
  Sender: FDA-Public Use
  Company Number: DE-ELI_LILLY_AND_COMPANY-DE200907005984

PATIENT
  Sex: Female

DRUGS (5)
  1. ALIMTA [Suspect]
     Indication: ADENOCARCINOMA
     Dosage: 500 MG/M2, UNKNOWN
     Route: 042
     Dates: start: 20090623
  2. CISPLATIN [Concomitant]
     Indication: ADENOCARCINOMA
     Route: 042
     Dates: start: 20090623
  3. FOLSAN [Concomitant]
     Dosage: 0.4 D/F, DAILY (1/D)
  4. VITAMIN B-12 [Concomitant]
     Dosage: 1 MG, UNKNOWN (BEFORE FIRST CYCLE)
     Route: 030
  5. DEXAMETHASONE [Concomitant]
     Dosage: 4 MG, UNK

REACTIONS (3)
  - PANCYTOPENIA [None]
  - PNEUMONIA [None]
  - SEPSIS [None]
